FAERS Safety Report 8378983-7 (Version None)
Quarter: 2012Q2

REPORT INFORMATION
  Report Type: 
  Country: None (occurrence: None)
  Receive Date: 20120522
  Receipt Date: 20120522
  Transmission Date: 20120825
  Serious: Yes (Other)
  Sender: FDA-Public Use
  Company Number: None

PATIENT
  Sex: Female
  Weight: 78.9259 kg

DRUGS (1)
  1. LANTUS [Suspect]
     Indication: TYPE 2 DIABETES MELLITUS
     Dosage: 25 UNITS 1 DAILY INJECTION

REACTIONS (3)
  - BURNING SENSATION [None]
  - HYPOAESTHESIA [None]
  - NEUROPATHY PERIPHERAL [None]
